FAERS Safety Report 8036511-X (Version None)
Quarter: 2012Q1

REPORT INFORMATION
  Report Type: 
  Country: None (occurrence: None)
  Receive Date: 20120111
  Receipt Date: 20120104
  Transmission Date: 20120608
  Serious: Yes (Other)
  Sender: FDA-Public Use
  Company Number: US-BAYER-2011-027321

PATIENT
  Age: 25 Year
  Sex: Female

DRUGS (5)
  1. YAZ [Suspect]
     Dosage: UNK
     Dates: start: 20040101
  2. YASMIN [Suspect]
     Dosage: UNK
     Dates: start: 20040101
  3. DROSPIRENONE AND ETHINYL ESTRADIOL [Suspect]
     Dosage: UNK
     Dates: start: 20040101, end: 20040101
  4. NEOCON [Concomitant]
  5. IBUPROFEN [Concomitant]
     Dosage: UNK
     Route: 048
     Dates: start: 20000101

REACTIONS (7)
  - CHOLECYSTECTOMY [None]
  - PAIN [None]
  - ANHEDONIA [None]
  - GENERAL PHYSICAL HEALTH DETERIORATION [None]
  - ANXIETY [None]
  - EMOTIONAL DISTRESS [None]
  - CHOLECYSTITIS CHRONIC [None]
